FAERS Safety Report 6184378-7 (Version None)
Quarter: 2009Q2

REPORT INFORMATION
  Report Type: 
  Country: None (occurrence: None)
  Receive Date: 20090508
  Receipt Date: 20090501
  Transmission Date: 20091009
  Serious: Yes (Hospitalization)
  Sender: FDA-Public Use
  Company Number: A0782843A

PATIENT
  Age: 64 Year
  Sex: Female

DRUGS (4)
  1. AVANDIA [Suspect]
     Indication: DIABETES MELLITUS
     Dosage: 4MG PER DAY
     Route: 048
     Dates: start: 19990106, end: 20030601
  2. ZOCOR [Concomitant]
  3. SYNTHROID [Concomitant]
  4. CITRACAL [Concomitant]

REACTIONS (2)
  - CARDIOMYOPATHY [None]
  - MYOCARDIAL INFARCTION [None]
